FAERS Safety Report 20809404 (Version 1)
Quarter: 2022Q2

REPORT INFORMATION
  Report Type: Spontaneous
  Country: US (occurrence: US)
  Receive Date: 20220510
  Receipt Date: 20220510
  Transmission Date: 20220721
  Serious: Yes (Other)
  Sender: FDA-Public Use
  Company Number: US-CONTRACT PHARMACAL CORP-2022CPC00021

PATIENT
  Age: 32 Year
  Sex: Female

DRUGS (1)
  1. SENNA [Suspect]
     Active Substance: SENNA LEAF\SENNOSIDES\SENNOSIDES A AND B
     Dosage: 18 TABLETS, 1 TO 2 TIMES A WEEK
     Dates: start: 2018, end: 202106

REACTIONS (3)
  - Cholangiocarcinoma [Not Recovered/Not Resolved]
  - Cholangitis sclerosing [Not Recovered/Not Resolved]
  - Drug abuse [Recovered/Resolved]

NARRATIVE: CASE EVENT DATE: 20210101
